FAERS Safety Report 8525361-3 (Version None)
Quarter: 2012Q3

REPORT INFORMATION
  Report Type: 
  Country: None (occurrence: None)
  Receive Date: 20120720
  Receipt Date: 20120720
  Transmission Date: 20120928
  Serious: Yes (Life-Threatening)
  Sender: FDA-Public Use
  Company Number: PHHY2012TW010600

PATIENT
  Sex: Female

DRUGS (2)
  1. ZOLEDRONOC ACID [Suspect]
     Indication: OSTEOPOROSIS
     Dosage: 5 MG/100ML
     Route: 042
     Dates: start: 20100101
  2. ZOLEDRONOC ACID [Suspect]
     Dosage: 5 MG/100ML
     Route: 042
     Dates: start: 20110701

REACTIONS (6)
  - HYPERSENSITIVITY [None]
  - THROAT TIGHTNESS [None]
  - HYPOPHAGIA [None]
  - TOOTH DISORDER [None]
  - GINGIVAL DISORDER [None]
  - RASH [None]
